FAERS Safety Report 9221622 (Version 1)
Quarter: 2013Q1

REPORT INFORMATION
  Report Type: Spontaneous
  Country: US (occurrence: None)
  Receive Date: 20120831
  Receipt Date: 20120831
  Transmission Date: 20140127
  Serious: No
  Sender: FDA-Public Use
  Company Number: 1000030733

PATIENT
  Age: 75 Year
  Sex: Female

DRUGS (8)
  1. DALIRESP [Suspect]
     Indication: CHRONIC OBSTRUCTIVE PULMONARY DISEASE
     Route: 048
     Dates: start: 20120517
  2. FLOVENT (FLUTICASONE PROPIONATE) (FLUTICASONE PROPIONATE) [Concomitant]
  3. PROAIR HFA (SALBUTAMOL SULFATE) (SALBUTAMOL SULFATE) [Concomitant]
  4. LOVASTATIN (LOVASTATIN) (LOVASTATIN) [Concomitant]
  5. ISOSORBIDE (ISOSORBIDE) (ISOSORBIDE) [Concomitant]
  6. PRILOSEC (OMEPRAZOLE) (OMEPRAZOLE) [Concomitant]
  7. PLAVIX (CLOPIDOGREL BISULFATE) (CLOPIDOGREL BISULFATE) [Concomitant]
  8. SINGULAIR [Concomitant]

REACTIONS (2)
  - Abdominal pain upper [None]
  - Diarrhoea [None]
